FAERS Safety Report 9890286 (Version 2)
Quarter: 2015Q4

REPORT INFORMATION
  Report Type: Report from Study
  Country: US (occurrence: US)
  Receive Date: 20140212
  Receipt Date: 20151013
  Transmission Date: 20160305
  Serious: Yes (Hospitalization)
  Sender: FDA-Public Use
  Company Number: US-ROCHE-1344556

PATIENT
  Sex: Female
  Weight: 83.54 kg

DRUGS (42)
  1. SYMBICORT [Concomitant]
     Active Substance: BUDESONIDE\FORMOTEROL FUMARATE DIHYDRATE
     Dosage: 160-4.5 MCG
     Route: 065
  2. COMBIVENT [Concomitant]
     Active Substance: ALBUTEROL SULFATE\IPRATROPIUM BROMIDE
  3. IPRATROPIUM BROMIDE. [Concomitant]
     Active Substance: IPRATROPIUM BROMIDE
  4. PRAVASTATIN [Concomitant]
     Active Substance: PRAVASTATIN\PRAVASTATIN SODIUM
     Route: 065
  5. BETHANECHOL CHLORIDE. [Concomitant]
     Active Substance: BETHANECHOL CHLORIDE
  6. XYZAL [Concomitant]
     Active Substance: LEVOCETIRIZINE DIHYDROCHLORIDE
  7. VERAMYST [Concomitant]
     Active Substance: FLUTICASONE FUROATE
     Route: 045
     Dates: start: 20100203
  8. NEXIUM [Concomitant]
     Active Substance: ESOMEPRAZOLE MAGNESIUM
  9. OMNARIS [Concomitant]
     Active Substance: CICLESONIDE
  10. BIAXIN [Concomitant]
     Active Substance: CLARITHROMYCIN
     Route: 048
  11. LIPITOR [Concomitant]
     Active Substance: ATORVASTATIN CALCIUM
     Route: 048
     Dates: start: 20140119
  12. FLUOXETINE [Concomitant]
     Active Substance: FLUOXETINE HYDROCHLORIDE
     Route: 048
     Dates: start: 20140119
  13. DULERA [Concomitant]
     Active Substance: FORMOTEROL FUMARATE DIHYDRATE\MOMETASONE FUROATE
  14. LEVAQUIN [Concomitant]
     Active Substance: LEVOFLOXACIN
     Route: 065
  15. PROZAC [Concomitant]
     Active Substance: FLUOXETINE HYDROCHLORIDE
     Route: 065
  16. VICOPROFEN [Concomitant]
     Active Substance: HYDROCODONE BITARTRATE\IBUPROFEN
  17. ZYFLO CR [Concomitant]
     Active Substance: ZILEUTON
  18. GENTAMYCIN [Concomitant]
     Active Substance: GENTAMICIN
  19. XOLAIR [Suspect]
     Active Substance: OMALIZUMAB
     Route: 058
  20. PREDNISONE. [Concomitant]
     Active Substance: PREDNISONE
     Indication: ASTHMA
     Route: 065
  21. FLONASE (UNITED STATES) [Concomitant]
  22. ALBUTEROL SULFATE. [Concomitant]
     Active Substance: ALBUTEROL SULFATE
     Dosage: 1 TO 4-6 HOURS
     Route: 065
  23. SIMVASTATIN. [Concomitant]
     Active Substance: SIMVASTATIN
  24. SOLU-MEDROL [Concomitant]
     Active Substance: METHYLPREDNISOLONE SODIUM SUCCINATE
     Route: 065
  25. SINGULAIR [Concomitant]
     Active Substance: MONTELUKAST SODIUM
     Route: 065
  26. PROMETHAZINE/CODEINE [Concomitant]
     Active Substance: CODEINE\PROMETHAZINE
  27. XOPENEX HFA [Concomitant]
     Active Substance: LEVALBUTEROL TARTRATE
  28. ZYRTEC [Concomitant]
     Active Substance: CETIRIZINE HYDROCHLORIDE
     Route: 048
     Dates: start: 20131228
  29. NASONEX [Concomitant]
     Active Substance: MOMETASONE FUROATE
     Dosage: 2 OD
     Route: 065
  30. EPIPEN [Concomitant]
     Active Substance: EPINEPHRINE
  31. DOXYCYCLINE MONOHYDRATE [Concomitant]
     Active Substance: DOXYCYCLINE
  32. METFORMIN HYDROCHLORIDE. [Concomitant]
     Active Substance: METFORMIN HYDROCHLORIDE
     Route: 048
     Dates: start: 20080303
  33. MUCINEX D [Concomitant]
     Active Substance: GUAIFENESIN\PSEUDOEPHEDRINE HYDROCHLORIDE
     Route: 048
     Dates: start: 20140119
  34. AZITHROMYCIN [Concomitant]
     Active Substance: AZITHROMYCIN ANHYDROUS
     Route: 048
  35. ASTEPRO [Concomitant]
     Active Substance: AZELASTINE HYDROCHLORIDE
     Route: 045
  36. CODEINE [Concomitant]
     Active Substance: CODEINE
  37. OMNARIS [Concomitant]
     Active Substance: CICLESONIDE
     Route: 045
  38. XOLAIR [Suspect]
     Active Substance: OMALIZUMAB
     Indication: ASTHMA
     Route: 058
     Dates: start: 20100615
  39. WELLBUTRIN [Concomitant]
     Active Substance: BUPROPION HYDROCHLORIDE
     Route: 048
  40. PROTONIX (UNITED STATES) [Concomitant]
     Route: 048
  41. LOSARTAN. [Concomitant]
     Active Substance: LOSARTAN
  42. ASMANEX [Concomitant]
     Active Substance: MOMETASONE FUROATE

REACTIONS (20)
  - Wheezing [Unknown]
  - Fatigue [Unknown]
  - Nasal obstruction [Unknown]
  - Rhinorrhoea [Unknown]
  - Pyrexia [Unknown]
  - Asthma [Unknown]
  - Haemoptysis [Unknown]
  - Barrett^s oesophagus [Unknown]
  - Idiopathic urticaria [Unknown]
  - Tachycardia [Unknown]
  - Bronchitis [Unknown]
  - Lymphadenopathy [Unknown]
  - Cough [Unknown]
  - Throat irritation [Unknown]
  - Sputum discoloured [Unknown]
  - Oral candidiasis [Unknown]
  - Conjunctivitis allergic [Unknown]
  - Oropharyngeal pain [Unknown]
  - Dyspnoea [Unknown]
  - Rhinitis allergic [Unknown]
